FAERS Safety Report 6126767-2 (Version None)
Quarter: 2009Q1

REPORT INFORMATION
  Report Type: 
  Country: None (occurrence: None)
  Receive Date: 20090320
  Receipt Date: 20090318
  Transmission Date: 20090719
  Serious: Yes (Other)
  Sender: FDA-Public Use
  Company Number: GB-JNJFOC-20090304756

PATIENT
  Age: 3 Year
  Sex: Male

DRUGS (4)
  1. CALPROFEN [Suspect]
     Route: 048
  2. CALPROFEN [Suspect]
     Indication: DRUG USE FOR UNKNOWN INDICATION
     Route: 048
  3. ACETAMINOPHEN [Concomitant]
     Indication: RESPIRATORY TRACT INFECTION
     Route: 048
  4. AMOXICILLIN [Concomitant]
     Indication: RESPIRATORY TRACT INFECTION
     Route: 048

REACTIONS (2)
  - OEDEMA PERIPHERAL [None]
  - URTICARIA [None]
